FAERS Safety Report 10011507 (Version 1)
Quarter: 2014Q1

REPORT INFORMATION
  Report Type: Spontaneous
  Country: US (occurrence: US)
  Receive Date: 20140314
  Receipt Date: 20140314
  Transmission Date: 20141002
  Serious: Yes (Other)
  Sender: FDA-Public Use
  Company Number: US-PFIZER INC-2014073293

PATIENT
  Age: 47 Year
  Sex: Female
  Weight: 62.58 kg

DRUGS (1)
  1. PREMARIN [Suspect]
     Dosage: 0.9 MG, UNK
     Route: 048
     Dates: start: 1994

REACTIONS (2)
  - Systemic lupus erythematosus [Unknown]
  - Nasal disorder [Unknown]
